FAERS Safety Report 7001682-0 (Version None)
Quarter: 2010Q3

REPORT INFORMATION
  Report Type: 
  Country: None (occurrence: None)
  Receive Date: 20100920
  Receipt Date: 20100913
  Transmission Date: 20110219
  Serious: Yes (Death, Hospitalization, Other)
  Sender: FDA-Public Use
  Company Number: FR-PFIZER INC-2010078379

PATIENT
  Age: 77 Year
  Sex: Female
  Weight: 53 kg

DRUGS (20)
  1. REVATIO [Suspect]
     Indication: PULMONARY ARTERIAL HYPERTENSION
     Dosage: 20 MG, 3X/DAY
     Dates: start: 20100406, end: 20100624
  2. AMLODIPINE [Suspect]
     Dosage: UNK
  3. LASIX [Concomitant]
     Indication: RENAL FAILURE
     Dosage: 80 MG, 2X/DAY, MORNING AND MIDDAY
  4. AMITRIPTYLINE HCL [Concomitant]
     Dosage: 5 GOUTS ON EVENING
  5. ALDACTONE [Concomitant]
     Indication: RENAL FAILURE
     Dosage: 200 ONCE DAILY
  6. CORTANCYL [Concomitant]
     Dosage: 7 MG DAILY
  7. NEXIUM [Concomitant]
     Dosage: 40 MG DAILY
  8. FERROUS SULFATE/FOLIC ACID [Concomitant]
     Dosage: UNK
  9. CACIT D3 [Concomitant]
     Dosage: UNK
  10. DIFFU K [Concomitant]
     Dosage: 1 DF, 3X/DAY
  11. PREVISCAN [Concomitant]
     Dosage: 0.25 DF, ALTERNATE DAY
  12. TRACLEER [Concomitant]
     Indication: PULMONARY ARTERIAL HYPERTENSION
     Dosage: 125 MG DAILY
  13. TRAMADOL HCL [Concomitant]
     Dosage: UNK
  14. FORLAX [Concomitant]
     Dosage: UNK
  15. DIGOXIN [Concomitant]
     Dosage: UNK
     Dates: end: 20100406
  16. CORDARONE [Concomitant]
     Indication: ARRHYTHMIA SUPRAVENTRICULAR
     Dosage: 200
     Dates: start: 20100406
  17. LEVOTHYROXINE SODIUM [Concomitant]
     Indication: HYPOTHYROIDISM
     Dosage: 100 UG, 1X/DAY
  18. NEBIVOLOL [Concomitant]
     Dosage: 1 DF DAILY
  19. ACETAMINOPHEN [Concomitant]
     Dosage: UNK
  20. OXYGEN [Concomitant]
     Dosage: 31 MIN DAILY

REACTIONS (4)
  - DEAFNESS BILATERAL [None]
  - FALL [None]
  - HYPOTENSION [None]
  - PULMONARY HYPERTENSION [None]
